FAERS Safety Report 21776130 (Version 2)
Quarter: 2023Q1

REPORT INFORMATION
  Report Type: Report from Study
  Country: PR (occurrence: PR)
  Receive Date: 20221226
  Receipt Date: 20230108
  Transmission Date: 20230418
  Serious: Yes (Death, Hospitalization)
  Sender: FDA-Public Use
  Company Number: PR-ABBVIE-4247744

PATIENT
  Sex: Male
  Weight: 65 kg

DRUGS (3)
  1. VENCLEXTA [Suspect]
     Active Substance: VENETOCLAX
     Indication: Natural killer-cell lymphoblastic lymphoma
     Route: 048
     Dates: start: 20221215
  2. VENCLEXTA [Suspect]
     Active Substance: VENETOCLAX
     Indication: Natural killer-cell lymphoblastic lymphoma
     Route: 048
     Dates: start: 202211, end: 202212
  3. AZACITIDINE [Concomitant]
     Active Substance: AZACITIDINE
     Indication: Natural killer-cell lymphoblastic lymphoma
     Route: 042
     Dates: start: 20221123

REACTIONS (5)
  - Death [Fatal]
  - Pain [Not Recovered/Not Resolved]
  - Off label use [Unknown]
  - Medical device implantation [Recovered/Resolved]
  - Feeling cold [Not Recovered/Not Resolved]

NARRATIVE: CASE EVENT DATE: 20221201
